FAERS Safety Report 11145226 (Version 3)
Quarter: 2016Q2

REPORT INFORMATION
  Report Type: Spontaneous
  Country: BR (occurrence: BR)
  Receive Date: 20150526
  Receipt Date: 20160520
  Transmission Date: 20160815
  Serious: Yes (Hospitalization, Other)
  Sender: FDA-Public Use
  Company Number: BR-JNJFOC-20150514399

PATIENT
  Age: 38 Year
  Sex: Female
  Weight: 47 kg

DRUGS (5)
  1. REMICADE [Suspect]
     Active Substance: INFLIXIMAB
     Indication: CROHN^S DISEASE
     Route: 042
     Dates: start: 200806
  2. VITAMIN-A [Concomitant]
     Active Substance: VITAMIN A
     Route: 065
  3. MATERNA [Concomitant]
     Active Substance: MINERALS\VITAMINS
     Route: 065
  4. REMICADE [Suspect]
     Active Substance: INFLIXIMAB
     Indication: CROHN^S DISEASE
     Route: 042
     Dates: start: 20160504
  5. REMICADE [Suspect]
     Active Substance: INFLIXIMAB
     Indication: CROHN^S DISEASE
     Route: 042
     Dates: start: 2010

REACTIONS (11)
  - Drug effect decreased [Unknown]
  - Off label use [Unknown]
  - Crohn^s disease [Unknown]
  - Dehydration [Unknown]
  - Blood potassium decreased [Unknown]
  - Malnutrition [Unknown]
  - Vomiting [Unknown]
  - Product use issue [Unknown]
  - Postoperative wound infection [Unknown]
  - Intestinal stenosis [Unknown]
  - Anal incontinence [Unknown]

NARRATIVE: CASE EVENT DATE: 2013
